FAERS Safety Report 8810072 (Version 1)
Quarter: 2012Q4

REPORT INFORMATION
  Report Type: 
  Country: JP (occurrence: JP)
  Receive Date: 20120926
  Receipt Date: 20120926
  Transmission Date: 20130627
  Serious: Yes (Other)
  Sender: FDA-Public Use
  Company Number: JP-PFIZER INC-2012237395

PATIENT
  Age: 81 Year
  Sex: Female

DRUGS (1)
  1. CELECOX [Suspect]
     Dosage: 200 mg, daily
     Route: 048

REACTIONS (2)
  - Urinary retention [Not Recovered/Not Resolved]
  - Urine output increased [Not Recovered/Not Resolved]
